FAERS Safety Report 20460713 (Version 1)
Quarter: 2022Q1

REPORT INFORMATION
  Report Type: Spontaneous
  Country: GB (occurrence: GB)
  Receive Date: 20220211
  Receipt Date: 20220211
  Transmission Date: 20220424
  Serious: Yes (Other)
  Sender: FDA-Public Use
  Company Number: None

PATIENT
  Age: 15 Year
  Sex: Female

DRUGS (2)
  1. CITALOPRAM [Suspect]
     Active Substance: CITALOPRAM HYDROBROMIDE
     Indication: Generalised anxiety disorder
     Dosage: 20 MILLIGRAM, 20MG OM
     Route: 048
     Dates: start: 20211108
  2. SERTRALINE [Suspect]
     Active Substance: SERTRALINE HYDROCHLORIDE
     Indication: Generalised anxiety disorder
     Dosage: 125 MILLIGRAM, 125MG OM
     Route: 048
     Dates: start: 20210331, end: 20211110

REACTIONS (2)
  - Bruxism [Not Recovered/Not Resolved]
  - Trismus [Unknown]

NARRATIVE: CASE EVENT DATE: 20210401
